FAERS Safety Report 6232149-5 (Version None)
Quarter: 2009Q2

REPORT INFORMATION
  Report Type: 
  Country: None (occurrence: None)
  Receive Date: 20090617
  Receipt Date: 20090604
  Transmission Date: 20091009
  Serious: Yes (Life-Threatening, Hospitalization)
  Sender: FDA-Public Use
  Company Number: DE-RANBAXY-2009RR-24784

PATIENT

DRUGS (3)
  1. CIPROFLOXACIN [Suspect]
     Dosage: 750 MG, BID
  2. CYMEVEN [Suspect]
     Route: 042
  3. MEROPENEM [Suspect]

REACTIONS (7)
  - ABDOMINAL PAIN UPPER [None]
  - BACK PAIN [None]
  - CHILLS [None]
  - CYTOMEGALOVIRUS INFECTION [None]
  - FLANK PAIN [None]
  - PYREXIA [None]
  - SALMONELLOSIS [None]
